FAERS Safety Report 15002269 (Version 1)
Quarter: 2018Q2

REPORT INFORMATION
  Report Type: Report from Study
  Country: None (occurrence: NZ)
  Receive Date: 20180612
  Receipt Date: 20180612
  Transmission Date: 20180711
  Serious: Yes (Hospitalization)
  Sender: FDA-Public Use
  Company Number: NZ-ABBVIE-18P-118-2284467-00

PATIENT
  Age: 70 Year
  Sex: Male
  Weight: 108 kg

DRUGS (19)
  1. DABIGATRAN [Concomitant]
     Active Substance: DABIGATRAN
     Indication: ATRIAL FIBRILLATION
  2. CILAZAPRIL [Concomitant]
     Active Substance: CILAZAPRIL ANHYDROUS
     Indication: CARDIOMYOPATHY
     Route: 048
     Dates: start: 20170530, end: 20180308
  3. OMEPRAZOLE. [Concomitant]
     Active Substance: OMEPRAZOLE
     Indication: GASTROOESOPHAGEAL REFLUX DISEASE
     Route: 048
     Dates: start: 20130719
  4. NORMAL SALINE SOLUTION [Concomitant]
     Route: 042
     Dates: start: 20180315, end: 20180315
  5. SPIRONOLACTONE. [Concomitant]
     Active Substance: SPIRONOLACTONE
     Indication: CARDIOMYOPATHY
     Dosage: 0.5 TABS
     Route: 048
     Dates: start: 20170530
  6. VENETOCLAX. [Suspect]
     Active Substance: VENETOCLAX
     Route: 048
     Dates: start: 20180301, end: 20180307
  7. CILAZAPRIL [Concomitant]
     Active Substance: CILAZAPRIL ANHYDROUS
     Route: 048
     Dates: start: 20180511
  8. NORMAL SALINE SOLUTION [Concomitant]
     Indication: PROPHYLAXIS
     Route: 042
     Dates: start: 20180222, end: 20180222
  9. DABIGATRAN [Concomitant]
     Active Substance: DABIGATRAN
     Indication: CARDIOMYOPATHY
     Route: 048
     Dates: start: 20170607
  10. VITAMIN B [Concomitant]
     Active Substance: VITAMIN B
     Indication: VITAMIN B12 DECREASED
     Route: 058
     Dates: start: 20180220
  11. DOXAZOSIN [Concomitant]
     Active Substance: DOXAZOSIN\DOXAZOSIN MESYLATE
     Indication: TRANSURETHRAL PROSTATECTOMY
     Route: 048
     Dates: start: 20161122
  12. CARVEDILOL. [Concomitant]
     Active Substance: CARVEDILOL
     Indication: CARDIOMYOPATHY
     Route: 048
     Dates: start: 20170530
  13. CEFACLOR. [Concomitant]
     Active Substance: CEFACLOR
     Indication: PAPILLOMA EXCISION
  14. ALLOPURINOL. [Concomitant]
     Active Substance: ALLOPURINOL
     Indication: PROPHYLAXIS
     Route: 048
     Dates: start: 20180208, end: 20180412
  15. NORMAL SALINE SOLUTION [Concomitant]
     Route: 042
     Dates: start: 20180301, end: 20180301
  16. VENETOCLAX. [Suspect]
     Active Substance: VENETOCLAX
     Route: 048
     Dates: start: 20180308
  17. NORMAL SALINE SOLUTION [Concomitant]
     Route: 042
     Dates: start: 20180308, end: 20180308
  18. VENETOCLAX. [Suspect]
     Active Substance: VENETOCLAX
     Indication: CHRONIC LYMPHOCYTIC LEUKAEMIA
     Route: 048
     Dates: start: 20180222, end: 20180228
  19. CEFACLOR. [Concomitant]
     Active Substance: CEFACLOR
     Indication: SEBORRHOEIC KERATOSIS
     Route: 048
     Dates: start: 20180302

REACTIONS (1)
  - Hypotension [Recovered/Resolved]

NARRATIVE: CASE EVENT DATE: 20180308
